FAERS Safety Report 4895162-6 (Version None)
Quarter: 2006Q1

REPORT INFORMATION
  Report Type: 
  Country: None (occurrence: None)
  Receive Date: 20060130
  Receipt Date: 20060119
  Transmission Date: 20060701
  Serious: Yes (Hospitalization, Other)
  Sender: FDA-Public Use
  Company Number: NL-BRISTOL-MYERS SQUIBB COMPANY-13253950

PATIENT
  Age: 54 Year
  Sex: Female

DRUGS (9)
  1. CARBOPLATIN [Suspect]
     Indication: OVARIAN CANCER
     Dosage: FIRST CYCLE 24-NOV-2005
     Route: 042
     Dates: start: 20051215, end: 20051215
  2. DOCETAXEL [Suspect]
     Indication: OVARIAN CANCER
     Dosage: FIRST CYCLE 14-NOV-2005
     Route: 042
     Dates: start: 20051215, end: 20051215
  3. CELECOXIB [Suspect]
     Indication: OVARIAN CANCER
     Route: 048
  4. OMEPRAZOLE [Concomitant]
     Route: 048
  5. LIPITOR [Concomitant]
  6. ASCAL [Concomitant]
     Route: 048
  7. ATACAND [Concomitant]
     Route: 048
  8. DILTIAZEM HCL [Concomitant]
     Route: 048
  9. PROMOCARD [Concomitant]
     Route: 048

REACTIONS (2)
  - DEHYDRATION [None]
  - VOMITING [None]
